FAERS Safety Report 23926814 (Version 1)
Quarter: 2024Q2

REPORT INFORMATION
  Report Type: Spontaneous
  Country: US (occurrence: US)
  Receive Date: 20240531
  Receipt Date: 20240531
  Transmission Date: 20240716
  Serious: No
  Sender: FDA-Public Use
  Company Number: US-RADIUS HEALTH, INC.-2023US005721

PATIENT
  Age: 65 Year
  Sex: Female

DRUGS (3)
  1. TYMLOS [Suspect]
     Active Substance: ABALOPARATIDE
     Indication: Senile osteoporosis
     Dosage: 80 MCG, DAILY
     Route: 058
     Dates: start: 20231009, end: 20231031
  2. TYMLOS [Suspect]
     Active Substance: ABALOPARATIDE
     Indication: Osteoporotic fracture
  3. DILTIAZEM HYDROCHLORIDE [Concomitant]
     Active Substance: DILTIAZEM HYDROCHLORIDE
     Indication: Product used for unknown indication
     Dosage: UNK
     Dates: start: 20231009, end: 20231031

REACTIONS (5)
  - Balance disorder [Unknown]
  - Pruritus [Unknown]
  - Dizziness [Unknown]
  - Nausea [Unknown]
  - Back pain [Not Recovered/Not Resolved]

NARRATIVE: CASE EVENT DATE: 20231009
